FAERS Safety Report 16198054 (Version 1)
Quarter: 2019Q2

REPORT INFORMATION
  Report Type: Spontaneous
  Country: DE (occurrence: DE)
  Receive Date: 20190415
  Receipt Date: 20190415
  Transmission Date: 20190711
  Serious: Yes (Hospitalization, Disabling, Other)
  Sender: FDA-Public Use
  Company Number: IND-DE-009507513-1904DEU004554

PATIENT
  Age: 69 Year
  Sex: Female
  Weight: 75 kg

DRUGS (4)
  1. PANTOPRAZOLE [Concomitant]
     Active Substance: PANTOPRAZOLE
     Indication: GASTRITIS
     Dosage: 0-0-0-1
     Dates: start: 20181018
  2. CYANOCOBALAMIN. [Concomitant]
     Active Substance: CYANOCOBALAMIN
     Indication: VITAMIN B12 DEFICIENCY
     Route: 058
     Dates: start: 20181002
  3. ARCOXIA [Suspect]
     Active Substance: ETORICOXIB
     Indication: BACK PAIN
     Dosage: 1X1, AS NECESSARY
     Dates: start: 20180321
  4. DEKRISTOL [Concomitant]
     Active Substance: CHOLECALCIFEROL
     Indication: VITAMIN D DEFICIENCY
     Dosage: 1 DOSAGE FORM, QW
     Dates: start: 20181002

REACTIONS (4)
  - Dyspnoea [Unknown]
  - Cardiac failure [Not Recovered/Not Resolved]
  - Bundle branch block left [Not Recovered/Not Resolved]
  - Pleural effusion [Not Recovered/Not Resolved]

NARRATIVE: CASE EVENT DATE: 201811
